FAERS Safety Report 7337852-1 (Version None)
Quarter: 2011Q1

REPORT INFORMATION
  Report Type: 
  Country: None (occurrence: None)
  Receive Date: 20110308
  Receipt Date: 20110226
  Transmission Date: 20110831
  Serious: Yes (Hospitalization)
  Sender: FDA-Public Use
  Company Number: US-EISAI INC-E7389-01169-CLI-US

PATIENT
  Weight: 109 kg

DRUGS (12)
  1. PERCOCET [Concomitant]
     Indication: PAIN
     Dosage: 5MG-325MG
     Route: 048
     Dates: start: 20110207
  2. PLENDIL [Concomitant]
     Indication: HYPERTENSION
     Route: 048
     Dates: start: 20010101
  3. E7389 (BOLD) [Suspect]
     Route: 041
     Dates: start: 20110215
  4. VITAMIN D [Concomitant]
     Route: 048
     Dates: start: 20100601
  5. ATIVAN [Concomitant]
     Indication: NAUSEA
     Route: 048
     Dates: start: 20110207
  6. ONDANSETRON [Concomitant]
     Indication: NAUSEA
     Route: 048
     Dates: start: 20110225
  7. PROCHLORPERAZINE [Concomitant]
     Indication: NAUSEA
     Route: 048
  8. OMEPRAZOLE [Concomitant]
     Route: 048
     Dates: start: 20110207
  9. POTASSIUM MALEATE [Concomitant]
     Route: 048
     Dates: start: 20110211
  10. ZIAC [Concomitant]
     Indication: HYPERTENSION
     Dosage: 6MG-10MG-25MG
     Route: 048
     Dates: start: 20100101
  11. SEPTRA DS [Concomitant]
     Route: 048
     Dates: start: 20110222
  12. SIMVASTATIN [Concomitant]
     Route: 048
     Dates: start: 20100101

REACTIONS (3)
  - PULMONARY EMBOLISM [None]
  - PANCYTOPENIA [None]
  - DYSPNOEA [None]
